FAERS Safety Report 6329417-5 (Version None)
Quarter: 2009Q3

REPORT INFORMATION
  Report Type: 
  Country: None (occurrence: None)
  Receive Date: 20090826
  Receipt Date: 20090819
  Transmission Date: 20100115
  Serious: Yes (Other)
  Sender: FDA-Public Use
  Company Number: A0803920A

PATIENT
  Age: 36 Year
  Sex: Female

DRUGS (2)
  1. LAMICTAL [Suspect]
     Indication: EPILEPSY
     Dosage: 150MG TWICE PER DAY
  2. NONE [Concomitant]

REACTIONS (5)
  - DRUG HYPERSENSITIVITY [None]
  - EXFOLIATIVE RASH [None]
  - RASH [None]
  - SKIN HYPERPIGMENTATION [None]
  - SYSTEMIC LUPUS ERYTHEMATOSUS [None]
